FAERS Safety Report 8805485 (Version 3)
Quarter: 2015Q1

REPORT INFORMATION
  Report Type: Report from Study
  Country: US (occurrence: US)
  Receive Date: 20120924
  Receipt Date: 20150316
  Transmission Date: 20150721
  Serious: Yes (Death)
  Sender: FDA-Public Use
  Company Number: US-ROCHE-1123450

PATIENT
  Sex: Female

DRUGS (24)
  1. GRANISETRON [Concomitant]
     Active Substance: GRANISETRON
     Route: 042
  2. MORPHINE SULFATE. [Concomitant]
     Active Substance: MORPHINE SULFATE
     Indication: PAIN
     Route: 048
  3. AVASTIN [Suspect]
     Active Substance: BEVACIZUMAB
     Route: 042
  4. CARBOPLATIN. [Concomitant]
     Active Substance: CARBOPLATIN
     Route: 042
  5. ABRAXANE [Concomitant]
     Active Substance: PACLITAXEL
  6. DEXAMETHASONE. [Concomitant]
     Active Substance: DEXAMETHASONE
     Route: 065
  7. DOXORUBICIN [Concomitant]
     Active Substance: DOXORUBICIN
  8. TUSSIONEX (UNITED STATES) [Concomitant]
     Route: 048
  9. LASIX [Concomitant]
     Active Substance: FUROSEMIDE
     Route: 048
  10. KEFLEX [Concomitant]
     Active Substance: CEPHALEXIN
     Route: 048
  11. COMPAZINE [Concomitant]
     Active Substance: PROCHLORPERAZINE MALEATE
     Indication: NAUSEA
     Route: 048
  12. AVASTIN [Suspect]
     Active Substance: BEVACIZUMAB
     Indication: BREAST CANCER
     Route: 042
     Dates: start: 20060630
  13. LACTULOSE. [Concomitant]
     Active Substance: LACTULOSE
     Indication: CONSTIPATION
     Dosage: AS DIRECTED BY PHYSICIAN
     Route: 048
  14. LORTAB (UNITED STATES) [Concomitant]
     Indication: PAIN
     Route: 048
  15. REGLAN [Concomitant]
     Active Substance: METOCLOPRAMIDE HYDROCHLORIDE
     Route: 048
  16. GEMZAR [Concomitant]
     Active Substance: GEMCITABINE HYDROCHLORIDE
     Route: 042
  17. DARBEPOETIN ALFA [Concomitant]
     Active Substance: DARBEPOETIN ALFA
     Route: 042
  18. DURAGESIC [Concomitant]
     Active Substance: FENTANYL
     Route: 061
  19. COLACE [Concomitant]
     Active Substance: DOCUSATE SODIUM
     Route: 048
  20. AVASTIN [Suspect]
     Active Substance: BEVACIZUMAB
     Route: 042
     Dates: start: 20060901
  21. POTASSIUM CHLORIDE. [Concomitant]
     Active Substance: POTASSIUM CHLORIDE
     Route: 048
  22. MEGACE [Concomitant]
     Active Substance: MEGESTROL ACETATE
     Route: 048
  23. PEGFILGRASTIM [Concomitant]
     Active Substance: PEGFILGRASTIM
     Route: 042
  24. ARANESP [Concomitant]
     Active Substance: DARBEPOETIN ALFA
     Indication: ANAEMIA

REACTIONS (7)
  - Death [Fatal]
  - Disease progression [Unknown]
  - Anaemia [Unknown]
  - Hepatic lesion [Unknown]
  - Off label use [Unknown]
  - Erythema [Unknown]
  - Metastases to bone [Unknown]
